FAERS Safety Report 8125093-X (Version None)
Quarter: 2012Q1

REPORT INFORMATION
  Report Type: 
  Country: None (occurrence: None)
  Receive Date: 20120209
  Receipt Date: 20120201
  Transmission Date: 20120608
  Serious: Yes (Death, Other)
  Sender: FDA-Public Use
  Company Number: CH-TEVA-321499ISR

PATIENT
  Age: 44 Year
  Sex: Male
  Weight: 65 kg

DRUGS (5)
  1. TYSABRI [Suspect]
     Dosage: 300 MILLIGRAM;
     Route: 042
     Dates: start: 20100316, end: 20100316
  2. COPAXONE [Suspect]
     Dosage: 20 MILLIGRAM;
     Route: 058
     Dates: start: 20110220, end: 20111001
  3. TYSABRI [Suspect]
     Indication: MULTIPLE SCLEROSIS
     Dosage: 300 MILLIGRAM;
     Route: 042
     Dates: start: 20070329, end: 20091201
  4. COPAXONE [Suspect]
     Indication: MULTIPLE SCLEROSIS
     Dosage: 20 MILLIGRAM;
     Route: 058
     Dates: start: 20041201, end: 20061201
  5. BETASERON [Concomitant]
     Indication: MULTIPLE SCLEROSIS
     Dosage: 1 DOSAGE FORMS;
     Route: 058
     Dates: start: 20040401, end: 20040601

REACTIONS (2)
  - MESOTHELIOMA MALIGNANT [None]
  - MESOTHELIOMA MALIGNANT RECURRENT [None]
